FAERS Safety Report 14676045 (Version 1)
Quarter: 2018Q1

REPORT INFORMATION
  Report Type: Spontaneous
  Country: NL (occurrence: NL)
  Receive Date: 20180323
  Receipt Date: 20180323
  Transmission Date: 20180509
  Serious: Yes (Hospitalization)
  Sender: FDA-Public Use
  Company Number: NL-TEVA-2018-NL-870325

PATIENT
  Age: 57 Year
  Sex: Male

DRUGS (10)
  1. DICLOFENAC [Suspect]
     Active Substance: DICLOFENAC
     Indication: BACK PAIN
     Dosage: 3DD1
     Route: 065
  2. PARACETAMOL PCH 500MG [Concomitant]
     Dosage: 4DD2 ZO NODIG
  3. SYMBICORT TURBUHALER 400/12MCG [Concomitant]
     Dosage: 2DD1
  4. EZETROL 10MG [Concomitant]
     Active Substance: EZETIMIBE
     Dosage: 1DD1
  5. ACETYLCYSTEINE BRUIS 600MG [Concomitant]
     Dosage: 1DD1
  6. IPRATROPIUM CYCLOCAPS 0,04MG [Concomitant]
     Dosage: 2DD1
  7. DIVISUN 800IE [Concomitant]
     Dosage: 1DD1
  8. AZITHROMYCINE SANDOZ 250MG [Concomitant]
     Dosage: 1X PER 2D 1ST
  9. IRBESARTAN TEVA 150MG [Concomitant]
     Dosage: 1DD1
  10. PREDNISOLON 5MG [Concomitant]
     Indication: ASTHMA
     Dosage: 1DD1

REACTIONS (1)
  - Anaphylactic shock [Recovered/Resolved]
